FAERS Safety Report 5885721-6 (Version None)
Quarter: 2008Q3

REPORT INFORMATION
  Report Type: 
  Country: None (occurrence: None)
  Receive Date: 20080916
  Receipt Date: 20080905
  Transmission Date: 20090109
  Serious: Yes (Hospitalization)
  Sender: FDA-Public Use
  Company Number: US-ELI_LILLY_AND_COMPANY-US200808000565

PATIENT
  Sex: Male
  Weight: 99.773 kg

DRUGS (13)
  1. BYETTA [Suspect]
     Indication: TYPE 2 DIABETES MELLITUS
     Dosage: 5 UG, 2/D
     Route: 058
     Dates: start: 20080201, end: 20080301
  2. BYETTA [Suspect]
     Dosage: 10 UG, 2/D
     Route: 058
     Dates: start: 20080301, end: 20080401
  3. METFORMIN [Concomitant]
     Indication: DIABETES MELLITUS
     Dosage: 500 MG, 2/D
     Route: 048
  4. TRICOR [Concomitant]
     Indication: BLOOD TRIGLYCERIDES
     Dosage: 145 MG, DAILY (1/D)
     Route: 048
  5. PRANDIN /USA/ [Concomitant]
     Indication: DIABETES MELLITUS
     Dosage: 2 MG, DAILY (1/D)
     Route: 048
  6. WELCHOL [Concomitant]
     Indication: BLOOD CHOLESTEROL
     Dosage: 625 MG, 3/D
     Route: 048
  7. NIACIN [Concomitant]
     Indication: BLOOD CHOLESTEROL
     Dosage: 1000 MG, DAILY (1/D)
     Route: 048
  8. LISINOPRIL [Concomitant]
     Indication: HYPERTENSION
     Dosage: 40 MG, DAILY (1/D)
     Route: 048
  9. ATENOLOL [Concomitant]
     Indication: HYPERTENSION
     Dosage: 100 MG, DAILY (1/D)
     Route: 048
  10. HYDROCHLOROTHIAZIDE [Concomitant]
  11. OMEPRAZOLE [Concomitant]
  12. DETROL [Concomitant]
     Dosage: 4 MG, DAILY (1/D)
     Route: 048
  13. FLOMAX [Concomitant]
     Dosage: 4 MG, DAILY (1/D)
     Route: 048

REACTIONS (3)
  - DIARRHOEA [None]
  - PANCREATITIS [None]
  - WEIGHT DECREASED [None]
